FAERS Safety Report 6535242-2 (Version None)
Quarter: 2010Q1

REPORT INFORMATION
  Report Type: 
  Country: None (occurrence: None)
  Receive Date: 20100113
  Receipt Date: 20100104
  Transmission Date: 20100710
  Serious: Yes (Hospitalization)
  Sender: FDA-Public Use
  Company Number: US-ELI_LILLY_AND_COMPANY-US200912001810

PATIENT
  Sex: Female
  Weight: 63.492 kg

DRUGS (9)
  1. FORTEO [Suspect]
     Indication: OSTEOPOROSIS
     Dosage: 20 UG, DAILY (1/D)
     Dates: start: 20080101, end: 20090601
  2. LEVOXYL [Concomitant]
     Dosage: 0.125 UNK, UNK
  3. FLUOXETINE [Concomitant]
     Dosage: 20 MG, UNK
  4. SINGULAIR [Concomitant]
     Dosage: 10 MG, UNK
  5. QVAR 40 [Concomitant]
  6. PROAIR HFA [Concomitant]
  7. LISINOPRIL [Concomitant]
     Dosage: 40 MG, UNK
  8. WARFARIN SODIUM [Concomitant]
     Dosage: 40 MG, UNK
  9. SIMVASTATIN [Concomitant]
     Dosage: 40 MG, UNK

REACTIONS (3)
  - PANCREATITIS ACUTE [None]
  - PANCREATITIS HAEMORRHAGIC [None]
  - PSEUDOCYST [None]
